FAERS Safety Report 7485024-2 (Version None)
Quarter: 2011Q2

REPORT INFORMATION
  Report Type: 
  Country: None (occurrence: None)
  Receive Date: 20110517
  Receipt Date: 20101019
  Transmission Date: 20111010
  Serious: Yes (Other)
  Sender: FDA-Public Use
  Company Number: US-BAYER-201033569NA

PATIENT
  Age: 17 Year
  Sex: Female
  Weight: 85.261 kg

DRUGS (7)
  1. WELLBUTRIN [Concomitant]
     Dosage: UNK UNK, BID
     Route: 048
  2. DROSPIRENONE AND ETHINYL ESTRADIOL [Suspect]
     Indication: ACNE
  3. GEODON [Concomitant]
     Dosage: UNK
     Route: 048
  4. YAZ [Suspect]
     Indication: ACNE
     Dosage: UNK
     Dates: start: 20070101, end: 20080101
  5. YAZ [Suspect]
     Indication: PREMENSTRUAL SYNDROME
  6. YASMIN [Suspect]
     Indication: ACNE
  7. NEXIUM [Concomitant]
     Dosage: UNK
     Route: 048

REACTIONS (6)
  - GALLBLADDER DISORDER [None]
  - CHOLECYSTITIS CHRONIC [None]
  - BILIARY DYSKINESIA [None]
  - PAIN [None]
  - ABDOMINAL PAIN [None]
  - VOMITING [None]
